FAERS Safety Report 19699789 (Version 2)
Quarter: 2021Q3

REPORT INFORMATION
  Report Type: Spontaneous
  Country: US (occurrence: US)
  Receive Date: 20210813
  Receipt Date: 20210818
  Transmission Date: 20211014
  Serious: Yes (Hospitalization)
  Sender: FDA-Public Use
  Company Number: US-TEVA-2021-US-1940246

PATIENT
  Age: 54 Year
  Sex: Female

DRUGS (1)
  1. TOPIRAMATE. [Suspect]
     Active Substance: TOPIRAMATE
     Indication: BACK PAIN
     Dosage: STARTED ABOUT 2 WEEKS AGO, RECEIVED INTERMITTENTLY
     Route: 065

REACTIONS (3)
  - Myopia [Recovering/Resolving]
  - Angle closure glaucoma [Recovering/Resolving]
  - Idiosyncratic drug reaction [Recovering/Resolving]
